FAERS Safety Report 17900128 (Version 1)
Quarter: 2020Q2

REPORT INFORMATION
  Report Type: Spontaneous
  Country: DE (occurrence: DE)
  Receive Date: 20200616
  Receipt Date: 20200616
  Transmission Date: 20200714
  Serious: Yes (Hospitalization)
  Sender: FDA-Public Use
  Company Number: DE-ACCORD-185355

PATIENT
  Age: 57 Year
  Sex: Male
  Weight: 76.5 kg

DRUGS (9)
  1. ALLOPURINOL. [Suspect]
     Active Substance: ALLOPURINOL
     Indication: PRODUCT USED FOR UNKNOWN INDICATION
     Dosage: 100 MG, 0-0-1-0
  2. HYDROCHLOROTHIAZIDE. [Suspect]
     Active Substance: HYDROCHLOROTHIAZIDE
     Indication: PRODUCT USED FOR UNKNOWN INDICATION
     Dosage: 25 MG, 0-0-1-0
  3. ENTRESTO [Concomitant]
     Active Substance: SACUBITRIL\VALSARTAN
     Dosage: 24/26 MG, 1-0-1-0
  4. TORASEMIDE [Suspect]
     Active Substance: TORSEMIDE
     Indication: PRODUCT USED FOR UNKNOWN INDICATION
     Dosage: 10 MG, 1.5-0-0-0
  5. APIXABAN [Concomitant]
     Active Substance: APIXABAN
     Dosage: 2.5 MG, 1-0-1-0
  6. PANTOPRAZOLE [Concomitant]
     Active Substance: PANTOPRAZOLE
     Dosage: 40 MG, 1-0-1-0
  7. NORSPAN [Concomitant]
     Active Substance: BUPRENORPHINE
     Dosage: 10 MG, DIENSTAGS
  8. BISOPROLOL [Concomitant]
     Active Substance: BISOPROLOL
     Dosage: 5 MG, 1-0-1-0
  9. METAMIZOLE SODIUM [Concomitant]
     Active Substance: METAMIZOLE SODIUM
     Dosage: 500 MG, 1-1-1-1

REACTIONS (4)
  - Arthralgia [Unknown]
  - Tachycardia [Unknown]
  - Musculoskeletal pain [Unknown]
  - Arrhythmia [Unknown]
